FAERS Safety Report 9129012 (Version 1)
Quarter: 2013Q1

REPORT INFORMATION
  Report Type: Spontaneous
  Country: US (occurrence: US)
  Receive Date: 20130125
  Receipt Date: 20130125
  Transmission Date: 20140127
  Serious: No
  Sender: FDA-Public Use
  Company Number: US-BRACCO-008693

PATIENT
  Age: 39 Year
  Sex: Female

DRUGS (2)
  1. MULTIHANCE [Suspect]
     Indication: NUCLEAR MAGNETIC RESONANCE IMAGING BRAIN
     Dates: start: 20120307, end: 20120307
  2. MULTIHANCE [Suspect]
     Indication: CONVULSION
     Dates: start: 20120307, end: 20120307

REACTIONS (1)
  - Presyncope [Recovered/Resolved]
